FAERS Safety Report 10255442 (Version 5)
Quarter: 2014Q3

REPORT INFORMATION
  Report Type: Report from Study
  Country: JP (occurrence: JP)
  Receive Date: 20140624
  Receipt Date: 20140912
  Transmission Date: 20150326
  Serious: Yes (Hospitalization)
  Sender: FDA-Public Use
  Company Number: JP-PFIZER INC-2014168423

PATIENT
  Age: 63 Year
  Sex: Male

DRUGS (22)
  1. PLACEBO [Suspect]
     Active Substance: UNSPECIFIED INGREDIENT
     Dosage: UNK, DAILY
     Route: 048
     Dates: start: 20130603, end: 20140602
  2. MINOMYCIN [Suspect]
     Active Substance: MINOCYCLINE HYDROCHLORIDE
     Indication: URTICARIA
     Dosage: 2 DF, DAILY
     Route: 048
     Dates: start: 20140603, end: 20140608
  3. OMEPRAL [Suspect]
     Active Substance: OMEPRAZOLE
     Indication: ABDOMINAL DISCOMFORT
  4. AMLODIPINE BESILATE [Suspect]
     Active Substance: AMLODIPINE BESYLATE
     Indication: HYPERTENSION
     Dosage: 5 MG, DAILY
     Route: 048
     Dates: start: 20140601, end: 20140601
  5. RIZE [Suspect]
     Active Substance: CLOTIAZEPAM
     Indication: ANXIETY DISORDER
     Dosage: 10 MG, DAILY
     Route: 048
     Dates: start: 20140601, end: 20140602
  6. LIPIDIL [Suspect]
     Active Substance: FENOFIBRATE
     Indication: DYSLIPIDAEMIA
     Dosage: 80 MG, DAILY
     Route: 048
     Dates: start: 20140509, end: 20140601
  7. OMEPRAL [Suspect]
     Active Substance: OMEPRAZOLE
     Indication: DYSPEPSIA
     Dosage: 200 MG, DAILY
     Route: 042
     Dates: start: 20140611, end: 20140616
  8. AMLODIPINE BESILATE [Suspect]
     Active Substance: AMLODIPINE BESYLATE
     Dosage: UNK
     Route: 048
     Dates: start: 20140609, end: 20140615
  9. AMLODIPINE BESILATE [Suspect]
     Active Substance: AMLODIPINE BESYLATE
     Dosage: 2.5 MG, DAILY
     Route: 048
     Dates: start: 20140627, end: 20140628
  10. MUCOSTA [Suspect]
     Active Substance: REBAMIPIDE
     Indication: GASTROINTESTINAL MUCOSAL DISORDER
     Dosage: 200 MG, DAILY
     Route: 048
     Dates: start: 20140603, end: 20140612
  11. AMLODIPINE BESILATE [Suspect]
     Active Substance: AMLODIPINE BESYLATE
     Dosage: 5 MG, UNK
     Route: 048
     Dates: start: 20140602, end: 20140602
  12. LOXONIN [Suspect]
     Active Substance: LOXOPROFEN SODIUM
     Indication: PYREXIA
     Dosage: 180 MG, DAILY
     Route: 048
     Dates: start: 20140609, end: 20140610
  13. GENINAX [Suspect]
     Active Substance: GARENOXACIN MESYLATE
     Indication: PYREXIA
     Dosage: 400 MG, DAILY
     Route: 048
     Dates: start: 20140609, end: 20140610
  14. BIO-THREE [Suspect]
     Active Substance: HERBALS
     Indication: DIARRHOEA
     Dosage: 3 DF, DAILY
     Route: 048
     Dates: start: 20140612, end: 20140625
  15. GASMOTIN [Suspect]
     Active Substance: MOSAPRIDE CITRATE
     Indication: DYSPEPSIA
     Dosage: 15 MG, DAILY
     Route: 048
     Dates: start: 20140509, end: 20140602
  16. EPADEL S [Suspect]
     Active Substance: ETHYL ICOSAPENTATE\ICOSAPENT
     Indication: DYSLIPIDAEMIA
     Dosage: 2700 MG, DAILY
     Route: 048
     Dates: start: 20140601, end: 20140602
  17. CEFON [Suspect]
     Active Substance: CEFOPERAZONE SODIUM\SULBACTAM SODIUM
     Indication: PYREXIA
     Dosage: 2 G, DAILY
     Route: 042
     Dates: start: 20140611, end: 20140616
  18. PRIMPERAN [Suspect]
     Active Substance: METOCLOPRAMIDE HYDROCHLORIDE
     Indication: DYSPEPSIA
     Dosage: 10 MG, DAILY
     Dates: start: 20140611, end: 20140612
  19. LIPIDIL [Suspect]
     Active Substance: FENOFIBRATE
     Dosage: UNK
     Route: 048
     Dates: start: 20140601, end: 20140602
  20. ALLEGRA [Suspect]
     Active Substance: FEXOFENADINE HYDROCHLORIDE
     Indication: URTICARIA
     Dosage: 120 MG, DAILY
     Route: 048
     Dates: start: 20140603, end: 20140612
  21. CELESTAMINE [Suspect]
     Active Substance: BETAMETHASONE\DEXCHLORPHENIRAMINE MALEATE
     Indication: URTICARIA
     Dosage: 2 DF, DAILY
     Route: 048
     Dates: start: 20140603, end: 20140612
  22. RESTAMIN [Suspect]
     Active Substance: DIPHENHYDRAMINE
     Dosage: UNK
     Dates: start: 20140611

REACTIONS (3)
  - Pyrexia [Recovered/Resolved]
  - Rash [Recovering/Resolving]
  - Interstitial lung disease [Recovered/Resolved]

NARRATIVE: CASE EVENT DATE: 20140608
